FAERS Safety Report 8854690 (Version 3)
Quarter: 2012Q4

REPORT INFORMATION
  Report Type: 
  Country: US (occurrence: US)
  Receive Date: 20121023
  Receipt Date: 20121126
  Transmission Date: 20130627
  Serious: Yes (Hospitalization, Other)
  Sender: FDA-Public Use
  Company Number: US-PFIZER INC-2012261976

PATIENT
  Age: 86 Year
  Sex: Female
  Weight: 87.08 kg

DRUGS (5)
  1. REVATIO [Suspect]
     Indication: PULMONARY HYPERTENSION
     Dosage: 20 mg, 3x/day
     Dates: start: 201104
  2. REVATIO [Suspect]
     Indication: LUNG DISORDER
  3. CARVEDILOL [Concomitant]
     Dosage: 12.5 mg, 2x/day
  4. OXYBUTYNIN [Concomitant]
     Dosage: 5 mg, 2x/day
  5. DILTIAZEM [Concomitant]
     Dosage: 120 mg, daily

REACTIONS (3)
  - Cardiac fibrillation [Unknown]
  - Oral disorder [Unknown]
  - Vomiting [Unknown]
